FAERS Safety Report 19414117 (Version 1)
Quarter: 2021Q2

REPORT INFORMATION
  Report Type: Spontaneous
  Country: US (occurrence: US)
  Receive Date: 20210615
  Receipt Date: 20210615
  Transmission Date: 20210717
  Serious: No
  Sender: FDA-Public Use
  Company Number: US-BLUEPRINT MEDICINES CORPORATION-SP-US-2021-000812

PATIENT
  Sex: Female

DRUGS (1)
  1. AYVAKIT [Suspect]
     Active Substance: AVAPRITINIB
     Indication: GASTROINTESTINAL STROMAL TUMOUR
     Route: 048
     Dates: start: 20181201

REACTIONS (12)
  - Unevaluable event [Unknown]
  - Memory impairment [Unknown]
  - Oropharyngeal discomfort [Unknown]
  - Drug ineffective [Unknown]
  - Ligament sprain [Unknown]
  - Insomnia [Unknown]
  - Thyroid mass [Unknown]
  - Aphasia [Unknown]
  - Asthenopia [Unknown]
  - Immunisation reaction [Unknown]
  - Tooth disorder [Unknown]
  - Hypophagia [Unknown]
